FAERS Safety Report 5257117-1 (Version None)
Quarter: 2007Q1

REPORT INFORMATION
  Report Type: 
  Country: None (occurrence: None)
  Receive Date: 20070302
  Receipt Date: 20070220
  Transmission Date: 20070707
  Serious: Yes (Disabling)
  Sender: FDA-Public Use
  Company Number: E3810-00677-SPO-GB

PATIENT
  Age: 63 Year
  Sex: Female

DRUGS (1)
  1. RABEPRAZOLE SODIUM [Suspect]
     Indication: DUODENAL ULCER
     Dosage: 10 MG, 1 IN 1 D, ORAL
     Route: 048
     Dates: start: 20040301, end: 20061116

REACTIONS (3)
  - FAECAL INCONTINENCE [None]
  - HYPERTONIC BLADDER [None]
  - URINARY INCONTINENCE [None]
